FAERS Safety Report 5574042-7 (Version None)
Quarter: 2007Q4

REPORT INFORMATION
  Report Type: 
  Country: None (occurrence: None)
  Receive Date: 20071221
  Receipt Date: 20071218
  Transmission Date: 20080405
  Serious: Yes (Other)
  Sender: FDA-Public Use
  Company Number: THQ2007A01181

PATIENT
  Age: 61 Year
  Sex: Female

DRUGS (2)
  1. ACTOS [Suspect]
     Indication: DIABETES MELLITUS
     Dosage: 15 MG (15 MG, 1 IN 1 D) PER ORAL
     Route: 048
     Dates: start: 20061101
  2. DIABETEX (METFORMIN HYDROCHLORIDE) [Concomitant]

REACTIONS (2)
  - RENAL IMPAIRMENT [None]
  - WEIGHT INCREASED [None]
